FAERS Safety Report 20213261 (Version 1)
Quarter: 2021Q4

REPORT INFORMATION
  Report Type: Spontaneous
  Country: ES (occurrence: ES)
  Receive Date: 20211221
  Receipt Date: 20211221
  Transmission Date: 20220303
  Serious: Yes (Hospitalization)
  Sender: FDA-Public Use
  Company Number: None

PATIENT
  Age: 40 Year
  Sex: Female

DRUGS (3)
  1. CLONAZEPAM [Suspect]
     Active Substance: CLONAZEPAM
     Indication: Suicide attempt
     Dosage: 20 COMPRIMIDOS DE CLONAZEPAM 2 MG
     Route: 048
     Dates: start: 20210922, end: 20210922
  2. LITHIUM CARBONATE [Suspect]
     Active Substance: LITHIUM CARBONATE
     Indication: Suicide attempt
     Dosage: 12 COMRIMIDOS DE LITIO 400 MG
     Route: 048
     Dates: start: 20210922, end: 20210922
  3. QUETIAPINE [Suspect]
     Active Substance: QUETIAPINE
     Indication: Suicide attempt
     Dosage: 21 COMPRIMIDOS DE QUETIAPINA DE 250 MG
     Route: 048
     Dates: start: 20210922, end: 20210922

REACTIONS (1)
  - Depressed level of consciousness [Recovered/Resolved]

NARRATIVE: CASE EVENT DATE: 20210922
